FAERS Safety Report 20529277 (Version 1)
Quarter: 2022Q1

REPORT INFORMATION
  Report Type: Spontaneous
  Country: US (occurrence: US)
  Receive Date: 20220228
  Receipt Date: 20220228
  Transmission Date: 20220423
  Serious: Yes (Disabling)
  Sender: FDA-Public Use
  Company Number: US-BoehringerIngelheim-2022-BI-156577

PATIENT
  Age: 69 Year
  Sex: Male

DRUGS (1)
  1. SPIRIVA [Suspect]
     Active Substance: TIOTROPIUM BROMIDE MONOHYDRATE
     Indication: Product used for unknown indication
     Route: 048

REACTIONS (3)
  - COVID-19 [Recovered/Resolved]
  - Gait inability [Unknown]
  - Neuropathy peripheral [Unknown]

NARRATIVE: CASE EVENT DATE: 20220228
